FAERS Safety Report 9302539 (Version 1)
Quarter: 2013Q2

REPORT INFORMATION
  Report Type: Spontaneous
  Country: US (occurrence: US)
  Receive Date: 20130522
  Receipt Date: 20130522
  Transmission Date: 20140414
  Serious: Yes (Hospitalization, Other)
  Sender: FDA-Public Use
  Company Number: US-AMGEN-USASP2013027843

PATIENT
  Age: 59 Year
  Sex: Female
  Weight: 90.7 kg

DRUGS (10)
  1. ENBREL [Suspect]
     Indication: PSORIATIC ARTHROPATHY
     Dosage: 50 MG, QWK
     Route: 058
     Dates: start: 20060609, end: 2008
  2. CENTRUM                            /07499601/ [Concomitant]
     Dosage: UNK
  3. METHOTREXATE [Concomitant]
     Dosage: 2.5 MG, UNK
  4. FEMARA [Concomitant]
     Dosage: 2.5 MG, UNK
  5. DICLOFENAC [Concomitant]
     Dosage: 100 MG, UNK
  6. OMEPRAZOLE [Concomitant]
     Dosage: 10 MG, UNK
  7. BISOPROLOL FUMARATE [Concomitant]
     Dosage: 10 MG, UNK
  8. OSCAL D [Concomitant]
     Dosage: UNK
  9. FOLIC ACID [Concomitant]
     Dosage: 20 MG, UNK
  10. BABY ASPIRIN [Concomitant]
     Dosage: 81 MG, UNK

REACTIONS (1)
  - Breast cancer [Recovered/Resolved]
